FAERS Safety Report 4399884-5 (Version None)
Quarter: 2004Q3

REPORT INFORMATION
  Report Type: 
  Country: None (occurrence: None)
  Receive Date: 20040714
  Receipt Date: 20040630
  Transmission Date: 20050211
  Serious: Yes (Death, Life-Threatening, Hospitalization)
  Sender: FDA-Public Use
  Company Number: DE_021009873

PATIENT
  Age: 67 Year
  Sex: Male
  Weight: 68 kg

DRUGS (8)
  1. GEMZAR [Suspect]
     Indication: BLADDER CANCER
     Dosage: 1820 MG/PER INFUSION
     Dates: start: 20021010, end: 20021107
  2. CISPLATIN (CISPLATIN PHARMACIA) [Suspect]
     Indication: BLADDER CANCER
     Dosage: 128 MG/PER INFUSION
     Dates: start: 20021010, end: 20021031
  3. PACLITAXEL [Suspect]
     Indication: BLADDER CANCER
     Dosage: 145 MG/PER INFUSION
     Dates: start: 20021010, end: 20021107
  4. MARCUMAR [Concomitant]
  5. ENOXAPARIN SODIUM [Concomitant]
  6. TAVANIC (LEVOFLOXACIN) [Concomitant]
  7. NOVALDIN INJ [Concomitant]
  8. AGIOLAX [Concomitant]

REACTIONS (14)
  - BLADDER CANCER [None]
  - BLOOD CREATININE INCREASED [None]
  - BLOOD UREA INCREASED [None]
  - COAGULOPATHY [None]
  - DEHYDRATION [None]
  - FATIGUE [None]
  - INFECTION [None]
  - LEUKOPENIA [None]
  - MALIGNANT NEOPLASM PROGRESSION [None]
  - MARKEDLY REDUCED DIETARY INTAKE [None]
  - PLATELET COUNT DECREASED [None]
  - PROTHROMBIN TIME PROLONGED [None]
  - PYREXIA [None]
  - VITAMIN K DEFICIENCY [None]
